FAERS Safety Report 15906943 (Version 2)
Quarter: 2019Q1

REPORT INFORMATION
  Report Type: Spontaneous
  Country: US (occurrence: US)
  Receive Date: 20190204
  Receipt Date: 20190213
  Transmission Date: 20190417
  Serious: No
  Sender: FDA-Public Use
  Company Number: US-PFIZER INC-2019049685

PATIENT
  Age: 76 Year

DRUGS (5)
  1. CELEBREX [Suspect]
     Active Substance: CELECOXIB
     Dosage: UNK
  2. VASELINE PURE [Suspect]
     Active Substance: PETROLATUM
     Dosage: UNK
  3. SALSALATE. [Suspect]
     Active Substance: SALSALATE
     Dosage: UNK
  4. SULFASALAZINE. [Suspect]
     Active Substance: SULFASALAZINE
     Dosage: UNK
  5. IODOSORB [Suspect]
     Active Substance: CADEXOMER IODINE
     Dosage: UNK

REACTIONS (1)
  - Drug hypersensitivity [Unknown]
